FAERS Safety Report 12983666 (Version 1)
Quarter: 2016Q4

REPORT INFORMATION
  Report Type: Spontaneous
  Country: HR (occurrence: HR)
  Receive Date: 20161129
  Receipt Date: 20161129
  Transmission Date: 20170207
  Serious: Yes (Hospitalization, Other)
  Sender: FDA-Public Use
  Company Number: HR-PFIZER INC-2016550755

PATIENT
  Sex: Female

DRUGS (1)
  1. XANAX [Suspect]
     Active Substance: ALPRAZOLAM
     Dosage: 40 MG (80 TABLETS AT 0.5 MG)
     Route: 048
     Dates: start: 20160421

REACTIONS (5)
  - Intentional overdose [Unknown]
  - Somnolence [Unknown]
  - Toxicity to various agents [Unknown]
  - Suicide attempt [Unknown]
  - Sluggishness [Unknown]

NARRATIVE: CASE EVENT DATE: 20160421
